FAERS Safety Report 10075970 (Version 2)
Quarter: 2014Q2

REPORT INFORMATION
  Report Type: Spontaneous
  Country: SE (occurrence: SE)
  Receive Date: 20140414
  Receipt Date: 20140414
  Transmission Date: 20141212
  Serious: Yes (Life-Threatening, Hospitalization, Other)
  Sender: FDA-Public Use
  Company Number: SE-BAYER-200110369GDS

PATIENT
  Age: 42 Year
  Sex: Female

DRUGS (15)
  1. CIPROFLOXACIN [Suspect]
     Indication: UROSEPSIS
     Route: 048
  2. METHADONE [Interacting]
     Indication: COLONIC PSEUDO-OBSTRUCTION
     Dosage: 140 MG (DAILY DOSE), QD, UNKNOWN
     Route: 065
  3. METHADONE [Interacting]
     Indication: GASTROINTESTINAL PAIN
  4. METHADONE [Interacting]
     Indication: COLONIC PSEUDO-OBSTRUCTION
  5. OMEPRAZOLE [Concomitant]
     Indication: PRODUCT USED FOR UNKNOWN INDICATION
     Route: 048
  6. VENLAFAXINE [Concomitant]
     Indication: PRODUCT USED FOR UNKNOWN INDICATION
     Route: 048
  7. FLUNITRAZEPAM [Concomitant]
     Indication: PRODUCT USED FOR UNKNOWN INDICATION
     Dosage: 1 MG (DAILY DOSE), QD, ORAL
     Route: 048
  8. METRONIDAZOLE [Concomitant]
     Indication: PRODUCT USED FOR UNKNOWN INDICATION
     Route: 048
  9. NITRAZEPAM [Concomitant]
     Indication: PRODUCT USED FOR UNKNOWN INDICATION
     Dosage: 5 MG (DAILY DOSE), QD, ORAL
     Route: 048
  10. CYCLIZINE [Concomitant]
     Indication: PRODUCT USED FOR UNKNOWN INDICATION
     Dosage: 50 MG (DAILY DOSE), QD, ORAL
     Route: 048
  11. FUROSEMIDE [FUROSEMIDE] [Concomitant]
     Indication: PRODUCT USED FOR UNKNOWN INDICATION
     Dosage: 40 MG (DAILY DOSE), QD, ORAL
     Route: 048
  12. PARACETAMOL [Concomitant]
     Indication: PRODUCT USED FOR UNKNOWN INDICATION
     Dosage: 500 MG (DAILY DOSE), QD, ORAL
     Route: 048
  13. PROPANTHELINE BROMIDE [Concomitant]
     Indication: PRODUCT USED FOR UNKNOWN INDICATION
     Dosage: 105 MG (DAILY DOSE), PRN, ORAL
     Route: 048
  14. CO-TRIMAZOLE [Concomitant]
  15. FLUOXETINE [Concomitant]

REACTIONS (4)
  - Respiratory depression [Recovered/Resolved]
  - Sedation [Recovered/Resolved]
  - Confusional state [Recovered/Resolved]
  - Drug interaction [Recovered/Resolved]
